FAERS Safety Report 18419780 (Version 1)
Quarter: 2020Q4

REPORT INFORMATION
  Report Type: Spontaneous
  Country: US (occurrence: US)
  Receive Date: 20201023
  Receipt Date: 20201023
  Transmission Date: 20210114
  Serious: No
  Sender: FDA-Public Use
  Company Number: US-TEVA-2020-US-1841073

PATIENT
  Age: 74 Year
  Sex: Male

DRUGS (1)
  1. PROAIR HFA [Suspect]
     Active Substance: ALBUTEROL SULFATE
     Indication: RESPIRATORY DISORDER
     Dosage: I USE IT RATHER SPARINGLY
     Route: 065
     Dates: start: 20200528

REACTIONS (3)
  - Drug effect less than expected [Unknown]
  - Lung disorder [Unknown]
  - Inappropriate schedule of product administration [Unknown]
